FAERS Safety Report 5650478-0 (Version None)
Quarter: 2008Q1

REPORT INFORMATION
  Report Type: 
  Country: None (occurrence: None)
  Receive Date: 20080304
  Receipt Date: 20080304
  Transmission Date: 20080703
  Serious: Yes (Hospitalization)
  Sender: FDA-Public Use
  Company Number: None

PATIENT
  Age: 47 Year
  Sex: Male
  Weight: 63.7 kg

DRUGS (14)
  1. VARENICLINE [Suspect]
     Indication: SMOKING CESSATION THERAPY
     Dosage: 0.5MG EVERYDAY PO
     Route: 048
     Dates: start: 20071215, end: 20071218
  2. VARENICLINE [Suspect]
     Dosage: 0.5MG BID PO
     Route: 048
     Dates: start: 20071218, end: 20071221
  3. ACETAMINOPHEN [Concomitant]
  4. ALBUTEROL 90/IPRATROPIUM [Concomitant]
  5. ALOH/MGOH/SIMTH XTRA STRENGTH [Concomitant]
  6. ATRAC-TAIN CREAM [Concomitant]
  7. DM 10/GUAIF [Concomitant]
  8. HYDROCHLOROTHIAZIDE [Concomitant]
  9. HYDROXYZINE [Concomitant]
  10. KETOCONAZOLE [Concomitant]
  11. MAGNESIUM HYDROXIDE TAB [Concomitant]
  12. MIRTAZAPINE [Concomitant]
  13. NICOTINE [Concomitant]
  14. PETROLATUM [Concomitant]

REACTIONS (4)
  - ALCOHOL ABUSE [None]
  - DEPRESSION [None]
  - FLAT AFFECT [None]
  - SUICIDAL IDEATION [None]
